FAERS Safety Report 8990819 (Version 1)
Quarter: 2012Q4

REPORT INFORMATION
  Report Type: Spontaneous
  Country: US (occurrence: None)
  Receive Date: 20121226
  Receipt Date: 20121226
  Transmission Date: 20130627
  Serious: Yes (Other)
  Sender: FDA-Public Use
  Company Number: None

PATIENT
  Sex: Female

DRUGS (2)
  1. RENVELA [Suspect]
     Indication: BLOOD PHOSPHORUS
     Dosage: 800 mg TID po
     Route: 048
  2. RENVELA [Suspect]
     Indication: CHRONIC KIDNEY DISEASE
     Dosage: 800 mg TID po
     Route: 048

REACTIONS (1)
  - Nausea [None]
